FAERS Safety Report 11225528 (Version 1)
Quarter: 2015Q2

REPORT INFORMATION
  Report Type: Spontaneous
  Country: US (occurrence: None)
  Receive Date: 20150626
  Receipt Date: 20150626
  Transmission Date: 20150821
  Serious: Yes (Hospitalization)
  Sender: FDA-Public Use
  Company Number: None

PATIENT
  Age: 90 Year
  Sex: Male
  Weight: 64.2 kg

DRUGS (1)
  1. ISTODAX [Suspect]
     Active Substance: ROMIDEPSIN
     Indication: MYCOSIS FUNGOIDES
     Dosage: 24 MG  DAY 1, 8, 15  Q28D  INTRAVENOUS
     Route: 042
     Dates: start: 20150122, end: 20150611

REACTIONS (5)
  - Infusion site pruritus [None]
  - Infusion site cellulitis [None]
  - Infusion site ulcer [None]
  - Infusion site oedema [None]
  - Infusion site extravasation [None]

NARRATIVE: CASE EVENT DATE: 20150611
